FAERS Safety Report 6251062-0 (Version None)
Quarter: 2009Q2

REPORT INFORMATION
  Report Type: 
  Country: None (occurrence: None)
  Receive Date: 20090630
  Receipt Date: 20081218
  Transmission Date: 20091009
  Serious: No
  Sender: FDA-Public Use
  Company Number: US-ABBOTT-08P-163-0495336-00

PATIENT
  Sex: Male

DRUGS (17)
  1. ZEMPLAR [Suspect]
     Indication: HYPERPARATHYROIDISM
     Dates: start: 20071101
  2. NEXIUM [Concomitant]
     Indication: DRUG USE FOR UNKNOWN INDICATION
  3. GLIPIZIDE [Concomitant]
     Indication: DRUG USE FOR UNKNOWN INDICATION
  4. COUMADIN [Concomitant]
     Indication: DRUG USE FOR UNKNOWN INDICATION
  5. PLAVIX [Concomitant]
     Indication: DRUG USE FOR UNKNOWN INDICATION
  6. ASPIRIN [Concomitant]
     Indication: DRUG USE FOR UNKNOWN INDICATION
  7. DIALYVITE [Concomitant]
     Indication: DRUG USE FOR UNKNOWN INDICATION
  8. SENSOPAR [Concomitant]
     Indication: DRUG USE FOR UNKNOWN INDICATION
  9. VITAMIN D [Concomitant]
     Indication: DRUG USE FOR UNKNOWN INDICATION
  10. FOLIC ACID [Concomitant]
     Indication: DRUG USE FOR UNKNOWN INDICATION
  11. NIACIN [Concomitant]
     Indication: DRUG USE FOR UNKNOWN INDICATION
  12. KEFLEX [Concomitant]
     Indication: DRUG USE FOR UNKNOWN INDICATION
  13. FOSRENOL [Concomitant]
     Indication: DRUG USE FOR UNKNOWN INDICATION
  14. RENAGEL [Concomitant]
     Indication: DRUG USE FOR UNKNOWN INDICATION
  15. IMDUR [Concomitant]
     Indication: DRUG USE FOR UNKNOWN INDICATION
  16. LOPRESSOR [Concomitant]
     Indication: DRUG USE FOR UNKNOWN INDICATION
  17. ZOCAR [Concomitant]
     Indication: DRUG USE FOR UNKNOWN INDICATION

REACTIONS (1)
  - DIZZINESS [None]
